FAERS Safety Report 5247362-3 (Version None)
Quarter: 2007Q1

REPORT INFORMATION
  Report Type: 
  Country: None (occurrence: None)
  Receive Date: 20070227
  Receipt Date: 20070215
  Transmission Date: 20070707
  Serious: Yes (Hospitalization)
  Sender: FDA-Public Use
  Company Number: HQWYE074116FEB07

PATIENT
  Sex: Male
  Weight: 81.72 kg

DRUGS (11)
  1. SIROLIMUS [Suspect]
     Indication: PROPHYLAXIS AGAINST TRANSPLANT REJECTION
     Dosage: 2 MG ALTERNATING WITH 3 MG
     Route: 048
     Dates: start: 20040607
  2. SIROLIMUS [Suspect]
     Dosage: 3 MG EVERY MONDAY AND THURSDAY, 2 MG EVERY TUESDAY, WEDNESDAY, FRIDAY, SATURDAY AND SUNDAY
     Route: 048
     Dates: start: 20051128
  3. FOLIC ACID [Concomitant]
     Dosage: NOT PROVIDED
     Route: 065
     Dates: start: 19980101
  4. CALCIUM PHOSPHATE/CALCIUM SODIUM LACTATE/ERGOCALCIFEROL [Concomitant]
     Dosage: NOT PROVIDED
     Route: 065
     Dates: start: 20050610
  5. CRESTOR [Concomitant]
     Indication: LIPIDS INCREASED
     Route: 048
     Dates: start: 20060607
  6. FISH OIL [Concomitant]
     Dosage: NOT PROVIDED
     Route: 065
     Dates: start: 19980101
  7. ACETAMINOPHEN [Concomitant]
     Dosage: NOT PROVIDED
     Route: 065
     Dates: start: 20040708
  8. PROPRANOLOL [Concomitant]
     Indication: HYPERTENSION
     Route: 048
     Dates: start: 19990101, end: 20061127
  9. PROPRANOLOL [Concomitant]
     Route: 048
     Dates: start: 20061128
  10. SODIUM BICARBONATE [Concomitant]
     Dosage: NOT PROVIDED
     Route: 065
     Dates: start: 20000101
  11. ASCORBIC ACID/ERGOCALCIFEROL/FOLIC ACID/NICOTINAMIDE/PANTHENOL/RETINOL [Concomitant]
     Dosage: NOT PROVIDED
     Route: 065
     Dates: start: 19990101

REACTIONS (1)
  - GASTROENTERITIS [None]
